FAERS Safety Report 9753081 (Version 1)
Quarter: 2013Q4

REPORT INFORMATION
  Report Type: Spontaneous
  Country: US (occurrence: US)
  Receive Date: 20131213
  Receipt Date: 20131213
  Transmission Date: 20140711
  Serious: Yes (Hospitalization)
  Sender: FDA-Public Use
  Company Number: US-BAYER-2013-152605

PATIENT
  Age: 45 Year
  Sex: Female

DRUGS (3)
  1. YASMIN [Suspect]
  2. COMBIVENT [Concomitant]
  3. ROBITUSSIN [GUAIFENESIN] [Concomitant]

REACTIONS (1)
  - Pulmonary embolism [None]
